FAERS Safety Report 10180886 (Version 1)
Quarter: 2014Q2

REPORT INFORMATION
  Report Type: Spontaneous
  Country: US (occurrence: US)
  Receive Date: 20140519
  Receipt Date: 20140519
  Transmission Date: 20141212
  Serious: No
  Sender: FDA-Public Use
  Company Number: US-AMGEN INC.-USASP2014008028

PATIENT
  Age: 66 Year
  Sex: Male

DRUGS (6)
  1. PROLIA [Suspect]
     Indication: OSTEOPOROSIS
     Dosage: UNK
     Route: 065
     Dates: start: 201301
  2. CALCIUM CARBONATE [Concomitant]
     Dosage: 500 MG, UNK
  3. MAGNESIUM [Concomitant]
  4. VITAMIN D                          /00107901/ [Concomitant]
     Dosage: 500 IU, QD
  5. AMINO ACID CHELATED ZINC [Concomitant]
  6. VITAMIN C WITH ROSE HIPS           /00008001/ [Concomitant]

REACTIONS (6)
  - Inappropriate schedule of drug administration [Unknown]
  - Nasopharyngitis [Recovering/Resolving]
  - Pyrexia [Recovering/Resolving]
  - Tenderness [Unknown]
  - Back pain [Recovering/Resolving]
  - Pain in extremity [Recovered/Resolved]
